FAERS Safety Report 7323090-5 (Version None)
Quarter: 2011Q1

REPORT INFORMATION
  Report Type: 
  Country: None (occurrence: None)
  Receive Date: 20110301
  Receipt Date: 20110215
  Transmission Date: 20110831
  Serious: Yes (Other)
  Sender: FDA-Public Use
  Company Number: PHHY2011US10866

PATIENT
  Sex: Male

DRUGS (2)
  1. GENTEAL MODERATE LUBRICANT EYE DROPS [Suspect]
     Dosage: UNK UKN, QD
  2. MICARDIS [Concomitant]
     Dosage: UNK UKN, UNK

REACTIONS (6)
  - VISION BLURRED [None]
  - BLINDNESS TRANSIENT [None]
  - MYDRIASIS [None]
  - VISUAL BRIGHTNESS [None]
  - OCULAR ICTERUS [None]
  - DIPLOPIA [None]
